FAERS Safety Report 7104455-3 (Version None)
Quarter: 2010Q4

REPORT INFORMATION
  Report Type: 
  Country: None (occurrence: None)
  Receive Date: 20101116
  Receipt Date: 20101108
  Transmission Date: 20110411
  Serious: Yes (Other)
  Sender: FDA-Public Use
  Company Number: US-BIOGENIDEC-2010BI036862

PATIENT
  Age: 41 Year
  Sex: Male

DRUGS (2)
  1. AVONEX [Suspect]
     Indication: MULTIPLE SCLEROSIS
     Route: 030
     Dates: start: 20061010
  2. ANTI-EPILEPTIC DRUGS [NOS] [Concomitant]
     Indication: POST-TRAUMATIC EPILEPSY

REACTIONS (1)
  - POST-TRAUMATIC EPILEPSY [None]
